FAERS Safety Report 26172672 (Version 1)
Quarter: 2025Q4

REPORT INFORMATION
  Report Type: Spontaneous
  Country: US (occurrence: US)
  Receive Date: 20251218
  Receipt Date: 20251218
  Transmission Date: 20260117
  Serious: Yes (Other)
  Sender: AUROBINDO
  Company Number: US-AUROBINDO-AUR-APL-2025-064811

PATIENT

DRUGS (1)
  1. ADENOSINE [Suspect]
     Active Substance: ADENOSINE
     Indication: Product used for unknown indication
     Dosage: UNK
     Route: 065

REACTIONS (2)
  - Syncope [Unknown]
  - Hypertension [Unknown]
